FAERS Safety Report 15125378 (Version 2)
Quarter: 2018Q3

REPORT INFORMATION
  Report Type: Spontaneous
  Country: SK (occurrence: SK)
  Receive Date: 20180710
  Receipt Date: 20180918
  Transmission Date: 20181010
  Serious: Yes (Life-Threatening, Other)
  Sender: FDA-Public Use
  Company Number: SK-MYLANLABS-2018M1048942

PATIENT
  Age: 65 Year
  Sex: Female

DRUGS (4)
  1. AZACITIDINE. [Concomitant]
     Active Substance: AZACITIDINE
     Indication: PRODUCT USED FOR UNKNOWN INDICATION
     Dosage: UNK, 1 CYCLE
  2. DAUNORUBICIN HYDROCHLORIDE. [Suspect]
     Active Substance: DAUNORUBICIN HYDROCHLORIDE
     Indication: ACUTE MYELOID LEUKAEMIA
     Dosage: INDUCTION THERAPY WITH ARA?C (3+7) IN REDUCTION
  3. CYTARABINE. [Suspect]
     Active Substance: CYTARABINE
     Indication: ACUTE MYELOID LEUKAEMIA
     Dosage: INDUCTION THERAPY WITH DAUNORUBICIN (3+7) REGIMEN IN REDUCTION
  4. MITOXANTRONE [Suspect]
     Active Substance: MITOXANTRONE HYDROCHLORIDE
     Indication: ACUTE MYELOID LEUKAEMIA
     Dosage: UNK

REACTIONS (8)
  - Enterocolitis [Unknown]
  - Liver disorder [Unknown]
  - Escherichia bacteraemia [Unknown]
  - Cholecystitis [Unknown]
  - Streptococcal bacteraemia [Unknown]
  - Pancytopenia [Unknown]
  - Bacterial sepsis [Unknown]
  - Jaundice [Unknown]
